FAERS Safety Report 5405141-8 (Version None)
Quarter: 2007Q3

REPORT INFORMATION
  Report Type: 
  Country: None (occurrence: None)
  Receive Date: 20070803
  Receipt Date: 20070725
  Transmission Date: 20080115
  Serious: Yes (Disabling)
  Sender: FDA-Public Use
  Company Number: FR-MERCK-0707FRA00025

PATIENT
  Age: 67 Year
  Sex: Male

DRUGS (8)
  1. NOROXIN [Suspect]
     Indication: PROPHYLAXIS
     Route: 048
     Dates: start: 20070615, end: 20070624
  2. NOROXIN [Suspect]
     Indication: PROSTATECTOMY
     Route: 048
     Dates: start: 20070615, end: 20070624
  3. HYDROCORTISONE [Concomitant]
     Indication: PITUITARY TUMOUR BENIGN
     Route: 048
  4. LEVOTHYROXINE SODIUM [Concomitant]
     Indication: PITUITARY TUMOUR BENIGN
     Route: 048
  5. ASPIRIN [Concomitant]
     Route: 048
  6. FLUVASTATIN SODIUM [Concomitant]
     Indication: DYSLIPIDAEMIA
     Route: 048
  7. DILTIAZEM HYDROCHLORIDE [Concomitant]
     Route: 048
  8. DORZOLAMIDE HYDROCHLORIDE [Concomitant]
     Indication: GLAUCOMA
     Route: 047

REACTIONS (3)
  - AMYOTROPHIC LATERAL SCLEROSIS [None]
  - MUSCLE FATIGUE [None]
  - MYALGIA [None]
